FAERS Safety Report 10438724 (Version 5)
Quarter: 2015Q3

REPORT INFORMATION
  Report Type: Spontaneous
  Country: US (occurrence: US)
  Receive Date: 20140908
  Receipt Date: 20150818
  Transmission Date: 20151125
  Serious: No
  Sender: FDA-Public Use
  Company Number: US-GILEAD-2014-0114355

PATIENT
  Age: 73 Year
  Sex: Female

DRUGS (3)
  1. LETAIRIS [Suspect]
     Active Substance: AMBRISENTAN
     Dosage: 5 MG, UNK
     Route: 065
     Dates: start: 20140905
  2. LETAIRIS [Suspect]
     Active Substance: AMBRISENTAN
     Indication: PRODUCT USED FOR UNKNOWN INDICATION
     Dosage: 5 MG, QD
     Route: 065
     Dates: start: 20140906
  3. ADCIRCA [Concomitant]
     Active Substance: TADALAFIL

REACTIONS (13)
  - Paraesthesia [Unknown]
  - Malaise [Unknown]
  - Peripheral swelling [Unknown]
  - Nasal congestion [Unknown]
  - Feeling abnormal [Unknown]
  - Dry mouth [Unknown]
  - Erythema [Unknown]
  - Influenza like illness [Unknown]
  - Arthralgia [Unknown]
  - Muscular weakness [Unknown]
  - Flushing [Unknown]
  - Pain [Unknown]
  - Asthenia [Unknown]
